FAERS Safety Report 19560243 (Version 1)
Quarter: 2021Q3

REPORT INFORMATION
  Report Type: Spontaneous
  Country: US (occurrence: US)
  Receive Date: 20210714
  Receipt Date: 20210714
  Transmission Date: 20211014
  Serious: No
  Sender: FDA-Public Use
  Company Number: US-SK LIFE SCIENCE, INC-SKPVG-2021-000019

PATIENT

DRUGS (2)
  1. VIMPAT [Suspect]
     Active Substance: LACOSAMIDE
     Indication: SEIZURE
     Route: 065
  2. XCOPRI [Suspect]
     Active Substance: CENOBAMATE
     Indication: SEIZURE
     Dosage: 150 MILLIGRAM, QD, AT NIGHT
     Route: 048
     Dates: start: 20201111, end: 20201214

REACTIONS (9)
  - Fall [Recovered/Resolved]
  - Insomnia [Recovered/Resolved]
  - Abscess [Unknown]
  - Contusion [Unknown]
  - Nausea [Unknown]
  - Seizure [Not Recovered/Not Resolved]
  - Mouth ulceration [Unknown]
  - Ligament sprain [Unknown]
  - Balance disorder [Unknown]

NARRATIVE: CASE EVENT DATE: 2020
